FAERS Safety Report 10441565 (Version 1)
Quarter: 2014Q3

REPORT INFORMATION
  Report Type: Spontaneous
  Country: IL (occurrence: IL)
  Receive Date: 20140908
  Receipt Date: 20140908
  Transmission Date: 20150326
  Serious: Yes (Other)
  Sender: FDA-Public Use
  Company Number: IL-009507513-1409ISR001767

PATIENT
  Age: 68 Year
  Sex: Female

DRUGS (4)
  1. PRAVASTATIN SODIUM. [Suspect]
     Active Substance: PRAVASTATIN SODIUM
  2. SIMVASTATIN. [Suspect]
     Active Substance: SIMVASTATIN
     Route: 048
  3. LIPITOR [Suspect]
     Active Substance: ATORVASTATIN CALCIUM
  4. LITORVA [Suspect]
     Active Substance: ATORVASTATIN CALCIUM

REACTIONS (3)
  - Myalgia [Recovered/Resolved]
  - Cardiac operation [Unknown]
  - Stent placement [Unknown]
